FAERS Safety Report 10133083 (Version 2)
Quarter: 2016Q3

REPORT INFORMATION
  Report Type: Spontaneous
  Country: US (occurrence: US)
  Receive Date: 20140428
  Receipt Date: 20160712
  Transmission Date: 20161108
  Serious: No
  Sender: FDA-Public Use
  Company Number: US-PFIZER INC-2014116132

PATIENT
  Age: 58 Year
  Sex: Male
  Weight: 83.91 kg

DRUGS (2)
  1. OXYCONTIN [Suspect]
     Active Substance: OXYCODONE HYDROCHLORIDE
     Indication: NEURALGIA
     Dosage: 120 MG, UNK (TWO, 60MG TIME RELEASED PILLS)
     Route: 048
  2. OXYCODONE HYDROCHLORIDE. [Suspect]
     Active Substance: OXYCODONE HYDROCHLORIDE
     Indication: PAIN
     Dosage: 150 MG, UNK

REACTIONS (2)
  - Drug ineffective [Unknown]
  - Withdrawal syndrome [Unknown]
